FAERS Safety Report 8286247-5 (Version None)
Quarter: 2012Q2

REPORT INFORMATION
  Report Type: 
  Country: None (occurrence: None)
  Receive Date: 20120416
  Receipt Date: 20120411
  Transmission Date: 20120825
  Serious: No
  Sender: FDA-Public Use
  Company Number: US-PFIZER INC-2012090635

PATIENT
  Sex: Male
  Weight: 86.168 kg

DRUGS (8)
  1. LISINOPRIL [Concomitant]
     Dosage: UNK
  2. CHANTIX [Suspect]
     Indication: SMOKING CESSATION THERAPY
     Dosage: 0.5 MG, 1X/DAY
     Route: 048
     Dates: start: 20120201
  3. ATENOLOL [Concomitant]
     Dosage: 25 MG, UNK
  4. GLIMEPIRIDE [Concomitant]
     Dosage: UNK
  5. CHANTIX [Suspect]
     Dosage: 1 MG, 2X/DAY
     Route: 048
  6. LEVOXYL [Concomitant]
     Dosage: UNK
  7. METFORMIN [Concomitant]
     Dosage: UNK
  8. PRAVASTATIN [Concomitant]
     Dosage: 80 MG, UNK

REACTIONS (5)
  - VOMITING [None]
  - NAUSEA [None]
  - DIZZINESS [None]
  - HAEMATOCRIT INCREASED [None]
  - ASTHENIA [None]
